FAERS Safety Report 12341599 (Version 1)
Quarter: 2016Q2

REPORT INFORMATION
  Report Type: Spontaneous
  Country: US (occurrence: None)
  Receive Date: 20160505
  Receipt Date: 20160505
  Transmission Date: 20160815
  Serious: No
  Sender: FDA-Public Use
  Company Number: None

PATIENT
  Age: 38 Year
  Sex: Female

DRUGS (1)
  1. PLEGRIDY [Suspect]
     Active Substance: PEGINTERFERON BETA-1A
     Indication: MULTIPLE SCLEROSIS
     Dosage: 125 MG SC QOW : EVERY OTEHR WEEK
     Route: 058
     Dates: start: 20150902

REACTIONS (2)
  - Injection site reaction [None]
  - Influenza like illness [None]

NARRATIVE: CASE EVENT DATE: 201604
